FAERS Safety Report 17456222 (Version 1)
Quarter: 2020Q1

REPORT INFORMATION
  Report Type: Spontaneous
  Country: FR (occurrence: FR)
  Receive Date: 20200225
  Receipt Date: 20200225
  Transmission Date: 20200409
  Serious: Yes (Congenital Anomaly)
  Sender: FDA-Public Use
  Company Number: FR-JNJFOC-20200226837

PATIENT
  Age: 0 Day
  Sex: Female

DRUGS (1)
  1. RISPERDAL [Suspect]
     Active Substance: RISPERIDONE
     Indication: DELUSIONAL DISORDER, PERSECUTORY TYPE
     Route: 064
     Dates: start: 20180819, end: 20190417

REACTIONS (3)
  - Foetal exposure during pregnancy [Unknown]
  - Congenital torticollis [Recovering/Resolving]
  - Plagiocephaly [Recovering/Resolving]

NARRATIVE: CASE EVENT DATE: 20190417
